FAERS Safety Report 15840590 (Version 1)
Quarter: 2019Q1

REPORT INFORMATION
  Report Type: Spontaneous
  Country: US (occurrence: US)
  Receive Date: 20190118
  Receipt Date: 20190118
  Transmission Date: 20190417
  Serious: No
  Sender: FDA-Public Use
  Company Number: US-ELI_LILLY_AND_COMPANY-US201901005915

PATIENT
  Sex: Male

DRUGS (10)
  1. HUMALOG [Suspect]
     Active Substance: INSULIN LISPRO
     Indication: TYPE 2 DIABETES MELLITUS
     Dosage: UNK UNK, UNKNOWN
     Route: 058
  2. PLAVIX [Concomitant]
     Active Substance: CLOPIDOGREL BISULFATE
     Indication: ANTICOAGULANT THERAPY
  3. HUMALOG [Suspect]
     Active Substance: INSULIN LISPRO
     Indication: TYPE 2 DIABETES MELLITUS
     Dosage: 35 U, OTHER BEFORE MEALS
     Route: 058
     Dates: end: 201901
  4. HUMULIN R U-500 [Suspect]
     Active Substance: INSULIN HUMAN
     Indication: TYPE 2 DIABETES MELLITUS
     Dosage: 100 U, EACH MORNING
     Route: 058
     Dates: start: 201901
  5. HUMULIN R U-500 [Suspect]
     Active Substance: INSULIN HUMAN
     Dosage: 120 U, DAILY NIGHT
     Route: 058
     Dates: start: 201901
  6. HUMALOG [Suspect]
     Active Substance: INSULIN LISPRO
     Dosage: 50 U, OTHER BEFORE MEALS
     Route: 058
     Dates: end: 201901
  7. TURMERIC CURCUMA LONGA [Concomitant]
     Indication: ANTIINFLAMMATORY THERAPY
  8. AMAREL [Concomitant]
     Active Substance: GLIMEPIRIDE
     Indication: PRODUCT USED FOR UNKNOWN INDICATION
     Dosage: 4 MG, BID
  9. LEVEMIR [Suspect]
     Active Substance: INSULIN DETEMIR
     Dosage: 80 U, EACH MORNING
     Route: 065
     Dates: end: 201901
  10. LEVEMIR [Suspect]
     Active Substance: INSULIN DETEMIR
     Indication: TYPE 2 DIABETES MELLITUS
     Dosage: 120 U, DAILY NIGHT
     Route: 065
     Dates: end: 201901

REACTIONS (5)
  - Insulin resistance [Unknown]
  - Blood glucose increased [Unknown]
  - Injection site induration [Unknown]
  - Drug ineffective [Unknown]
  - Intentional product misuse [Unknown]
